FAERS Safety Report 4481620-5 (Version None)
Quarter: 2004Q4

REPORT INFORMATION
  Report Type: 
  Country: None (occurrence: None)
  Receive Date: 20041021
  Receipt Date: 20041012
  Transmission Date: 20050328
  Serious: Yes (Life-Threatening, Disabling)
  Sender: FDA-Public Use
  Company Number: US-MERCK-0410USA01752

PATIENT
  Age: 58 Year
  Sex: Male

DRUGS (9)
  1. ZOCOR [Suspect]
     Indication: BLOOD CHOLESTEROL INCREASED
     Route: 048
     Dates: start: 20040101
  2. ZOCOR [Suspect]
     Route: 048
     Dates: end: 20040101
  3. ZETIA [Concomitant]
     Indication: CORONARY ARTERY OCCLUSION
     Route: 048
     Dates: start: 20040101, end: 20040101
  4. COZAAR [Concomitant]
     Route: 048
  5. PLAVIX [Concomitant]
     Route: 065
  6. TOPROL-XL [Concomitant]
     Route: 048
  7. FOLGARD [Concomitant]
     Route: 065
  8. CLARINEX [Concomitant]
     Route: 065
  9. ASPIRIN [Concomitant]
     Route: 065

REACTIONS (5)
  - CORONARY ARTERY OCCLUSION [None]
  - MUSCLE CRAMP [None]
  - MUSCULOSKELETAL STIFFNESS [None]
  - PAIN IN EXTREMITY [None]
  - RENAL DISORDER [None]
